FAERS Safety Report 23888798 (Version 2)
Quarter: 2024Q2

REPORT INFORMATION
  Report Type: Spontaneous
  Country: FR (occurrence: FR)
  Receive Date: 20240523
  Receipt Date: 20240606
  Transmission Date: 20240716
  Serious: No
  Sender: FDA-Public Use
  Company Number: FR-PFIZER INC-PV202400063308

PATIENT
  Age: 11 Year
  Sex: Female
  Weight: 34 kg

DRUGS (2)
  1. SOMATROPIN [Suspect]
     Active Substance: SOMATROPIN
     Indication: Growth hormone deficiency
     Dosage: 1.5 MG, 1X/DAY (ALTERNATE 1.6 MG)
     Route: 058
     Dates: start: 20231001
  2. SOMATROPIN [Suspect]
     Active Substance: SOMATROPIN
     Dosage: 6.4 MG, 1X/DAY(4 TIMES THE DOSE INDICATED BY THE PEN (THAT DAY 1.6 MG)
     Route: 058
     Dates: start: 20240514, end: 20240514

REACTIONS (3)
  - Device mechanical issue [Unknown]
  - Accidental overdose [Unknown]
  - Poor quality device used [Unknown]

NARRATIVE: CASE EVENT DATE: 20240514
